FAERS Safety Report 7472121-0 (Version None)
Quarter: 2011Q2

REPORT INFORMATION
  Report Type: 
  Country: None (occurrence: None)
  Receive Date: 20110511
  Receipt Date: 20110104
  Transmission Date: 20111010
  Serious: No
  Sender: FDA-Public Use
  Company Number: A0904250A

PATIENT
  Age: 78 Year
  Sex: Female

DRUGS (1)
  1. TYKERB [Suspect]
     Dosage: 1250MG PER DAY
     Route: 048
     Dates: start: 20101123

REACTIONS (4)
  - EYE SWELLING [None]
  - RASH [None]
  - OCULAR HYPERAEMIA [None]
  - PRURITUS [None]
